FAERS Safety Report 5133971-9 (Version None)
Quarter: 2006Q4

REPORT INFORMATION
  Report Type: 
  Country: None (occurrence: None)
  Receive Date: 20061018
  Receipt Date: 20061009
  Transmission Date: 20070319
  Serious: Yes (Other)
  Sender: FDA-Public Use
  Company Number: 2006123736

PATIENT
  Age: 63 Year
  Sex: Female
  Weight: 63.5036 kg

DRUGS (4)
  1. ZANTAC 150 [Suspect]
     Indication: DYSPEPSIA
     Dosage: 1 TABLET AT 2:30 PM AND AT 1:30 AM, ORAL
     Route: 048
     Dates: start: 20061008, end: 20061009
  2. RALOXIFENE HCL [Concomitant]
  3. MULTIVITAMINS (ASCORBIC ACID, ERGOCALCIFEROL, FOLIC ACID, NICOTINAMIDE [Concomitant]
  4. QUINAPRIL HCL [Concomitant]

REACTIONS (9)
  - ERYTHEMA [None]
  - HYPERSENSITIVITY [None]
  - JOINT SWELLING [None]
  - LIP SWELLING [None]
  - PHARYNGOLARYNGEAL PAIN [None]
  - PRURITUS [None]
  - SWELLING [None]
  - SWELLING FACE [None]
  - URTICARIA [None]
